FAERS Safety Report 6056169-9 (Version None)
Quarter: 2009Q1

REPORT INFORMATION
  Report Type: 
  Country: None (occurrence: None)
  Receive Date: 20090126
  Receipt Date: 20090126
  Transmission Date: 20090719
  Serious: No
  Sender: FDA-Public Use
  Company Number: None

PATIENT

DRUGS (1)
  1. TUBERCULIN PPD APLISOL 5TU/0.1 ML JHP PHARMACEUTICALS [Suspect]
     Indication: TUBERCULIN TEST
     Dosage: 0.1ML ONCE SQ
     Route: 058
     Dates: start: 20080601, end: 20080610

REACTIONS (3)
  - INJECTION SITE ERYTHEMA [None]
  - PRODUCT QUALITY ISSUE [None]
  - SKIN REACTION [None]
